FAERS Safety Report 5742743-3 (Version None)
Quarter: 2008Q2

REPORT INFORMATION
  Report Type: 
  Country: None (occurrence: None)
  Receive Date: 20080515
  Receipt Date: 20080515
  Transmission Date: 20081010
  Serious: Yes (Hospitalization, Other)
  Sender: FDA-Public Use
  Company Number: None

PATIENT
  Age: 68 Year
  Sex: Female
  Weight: 54.4316 kg

DRUGS (1)
  1. BONIVA [Suspect]

REACTIONS (7)
  - ASTHENIA [None]
  - CHEST PAIN [None]
  - DYSPNOEA [None]
  - GASTRITIS [None]
  - HEART RATE INCREASED [None]
  - HYPERHIDROSIS [None]
  - NAUSEA [None]
